FAERS Safety Report 25110878 (Version 1)
Quarter: 2025Q1

REPORT INFORMATION
  Report Type: Spontaneous
  Country: US (occurrence: US)
  Receive Date: 20250324
  Receipt Date: 20250324
  Transmission Date: 20250409
  Serious: Yes (Hospitalization, Other)
  Sender: Steriscience PTE
  Company Number: US-STERISCIENCE B.V.-2024-ST-001973

PATIENT
  Age: 37 Year
  Sex: Female

DRUGS (5)
  1. LABETALOL [Suspect]
     Active Substance: LABETALOL
     Indication: Pre-eclampsia
  2. LABETALOL [Suspect]
     Active Substance: LABETALOL
     Indication: Pre-eclampsia
     Route: 048
  3. MAGNESIUM SULFATE [Suspect]
     Active Substance: MAGNESIUM SULFATE
     Indication: Pre-eclampsia
  4. MAGNESIUM SULFATE [Suspect]
     Active Substance: MAGNESIUM SULFATE
  5. NIFEDIPINE [Suspect]
     Active Substance: NIFEDIPINE
     Indication: Pre-eclampsia
     Route: 048

REACTIONS (2)
  - Drug ineffective [Unknown]
  - Maternal exposure during pregnancy [Unknown]
